FAERS Safety Report 5896446-5 (Version None)
Quarter: 2008Q3

REPORT INFORMATION
  Report Type: 
  Country: None (occurrence: None)
  Receive Date: 20080924
  Receipt Date: 20070604
  Transmission Date: 20090109
  Serious: No
  Sender: FDA-Public Use
  Company Number: US-BAYER-200711731BWH

PATIENT
  Sex: Male

DRUGS (4)
  1. AVELOX [Suspect]
     Indication: BRONCHITIS
     Route: 048
     Dates: start: 20070603
  2. AVELOX [Suspect]
     Route: 048
     Dates: start: 20070402
  3. ANOTHER MEDICATION FOR BRONCHITIS [Concomitant]
     Indication: BRONCHITIS
     Dates: start: 20070401
  4. ZITHROMAX [Concomitant]
     Indication: BRONCHITIS
     Dates: start: 20070601

REACTIONS (4)
  - ANXIETY [None]
  - DIARRHOEA [None]
  - NERVOUSNESS [None]
  - VOMITING [None]
